FAERS Safety Report 4314559-6 (Version None)
Quarter: 2004Q1

REPORT INFORMATION
  Report Type: 
  Country: None (occurrence: None)
  Receive Date: 20040309
  Receipt Date: 20040303
  Transmission Date: 20041129
  Serious: Yes (Disabling)
  Sender: FDA-Public Use
  Company Number: WAES 0403USA00332

PATIENT
  Age: 74 Year
  Sex: Male

DRUGS (4)
  1. ZETIA [Suspect]
     Indication: BLOOD CHOLESTEROL INCREASED
     Route: 048
     Dates: start: 20030501
  2. NEURONTIN [Concomitant]
  3. NIASPAN [Concomitant]
     Indication: HIGH DENSITY LIPOPROTEIN DECREASED
     Dates: start: 20040101
  4. INDERAL [Concomitant]

REACTIONS (3)
  - JOINT STIFFNESS [None]
  - MUSCULOSKELETAL STIFFNESS [None]
  - PAIN [None]
